FAERS Safety Report 8048755-1 (Version None)
Quarter: 2012Q1

REPORT INFORMATION
  Report Type: 
  Country: None (occurrence: None)
  Receive Date: 20120117
  Receipt Date: 20120109
  Transmission Date: 20120608
  Serious: Yes (Hospitalization)
  Sender: FDA-Public Use
  Company Number: US-BAYER-2010-002216

PATIENT
  Sex: Female
  Weight: 71.655 kg

DRUGS (1)
  1. YASMIN [Suspect]

REACTIONS (1)
  - CHOLELITHIASIS [None]
